FAERS Safety Report 16590539 (Version 1)
Quarter: 2019Q3

REPORT INFORMATION
  Report Type: Spontaneous
  Country: US (occurrence: US)
  Receive Date: 20190604
  Receipt Date: 20190604
  Transmission Date: 20191004
  Serious: No
  Sender: FDA-Public Use
  Company Number: None

PATIENT
  Age: 47 Year
  Sex: Male
  Weight: 97.98 kg

DRUGS (1)
  1. CIMZIA [Suspect]
     Active Substance: CERTOLIZUMAB PEGOL
     Indication: ANKYLOSING SPONDYLITIS
     Dosage: INJECT 400MG (2 VIALS) SUBCUTANEOUSLY  AT WEEK 0..2, \T\ 4   AS DIRECTED
     Route: 058
     Dates: start: 201808

REACTIONS (1)
  - Dizziness [None]
